FAERS Safety Report 6559196-8 (Version None)
Quarter: 2010Q1

REPORT INFORMATION
  Report Type: 
  Country: None (occurrence: None)
  Receive Date: 20100129
  Receipt Date: 20091019
  Transmission Date: 20100710
  Serious: No
  Sender: FDA-Public Use
  Company Number: US-ABBOTT-07P-163-0416617-00

PATIENT
  Sex: Female
  Weight: 109.1 kg

DRUGS (3)
  1. HUMIRA [Suspect]
     Indication: PSORIATIC ARTHROPATHY
     Route: 058
     Dates: start: 20070329, end: 20090601
  2. SULFASALAZINE [Concomitant]
     Indication: PSORIATIC ARTHROPATHY
  3. NABUTMETONE [Concomitant]
     Indication: PSORIATIC ARTHROPATHY

REACTIONS (4)
  - ARTHRALGIA [None]
  - ARTHRITIS [None]
  - DRUG INEFFECTIVE [None]
  - OEDEMA PERIPHERAL [None]
